FAERS Safety Report 4596380-7 (Version None)
Quarter: 2005Q1

REPORT INFORMATION
  Report Type: 
  Country: None (occurrence: None)
  Receive Date: 20050228
  Receipt Date: 20041110
  Transmission Date: 20050727
  Serious: Yes (Other)
  Sender: FDA-Public Use
  Company Number: 2004102316

PATIENT
  Age: 26 Year
  Sex: Male

DRUGS (7)
  1. SOLU-MEDROL [Suspect]
     Indication: RELAPSING POLYCHONDRITIS
     Dosage: UNK (500 MG, UNKNOWN), INTRAVENOUS
     Route: 042
  2. PREDNISOLONE [Suspect]
     Indication: RELAPSING POLYCHONDRITIS
     Dosage: 100 MG (100 MG, 1 IN 1 D); ORAL (SEE IMAGE)
  3. CYCLOPHOSPHAMIDE [Suspect]
     Indication: RELAPSING POLYCHONDRITIS
     Dosage: 150 MG (150 MG, 1 IN 1 D); ORAL
     Route: 048
  4. ISONIAZID [Concomitant]
  5. RIFAMPICIN [Concomitant]
  6. ETHAMBUTOL HCL [Concomitant]
  7. PYRAZINAMIDE [Concomitant]

REACTIONS (1)
  - KAPOSI'S SARCOMA [None]
